FAERS Safety Report 24575641 (Version 1)
Quarter: 2024Q4

REPORT INFORMATION
  Report Type: Spontaneous
  Country: US (occurrence: None)
  Receive Date: 20241101
  Receipt Date: 20241101
  Transmission Date: 20250114
  Serious: Yes (Disabling)
  Sender: Public
  Company Number: None

PATIENT
  Age: 85 Year
  Sex: Male
  Weight: 74.25 kg

DRUGS (9)
  1. CELECOXIB [Suspect]
     Active Substance: CELECOXIB
     Indication: Arthritis
  2. OMEPRAZOLE [Concomitant]
     Active Substance: OMEPRAZOLE
  3. Toprol (Metropolol) [Concomitant]
  4. Atrial Fibrillation [Concomitant]
  5. FLECAINIDE [Concomitant]
     Active Substance: FLECAINIDE
  6. TRAMADOL [Concomitant]
     Active Substance: TRAMADOL
  7. Ipratropium .03% Spray [Concomitant]
  8. B12 [Concomitant]
  9. VITAMIN D3 [Concomitant]
     Active Substance: CHOLECALCIFEROL

REACTIONS (1)
  - Vertigo [None]

NARRATIVE: CASE EVENT DATE: 20241006
